FAERS Safety Report 16297609 (Version 1)
Quarter: 2019Q2

REPORT INFORMATION
  Report Type: Spontaneous
  Country: GB (occurrence: GB)
  Receive Date: 20190509
  Receipt Date: 20190509
  Transmission Date: 20190711
  Serious: Yes (Other)
  Sender: FDA-Public Use
  Company Number: None

PATIENT
  Sex: Female

DRUGS (6)
  1. EVENING PRIMROSE OIL [Concomitant]
     Active Substance: EVENING PRIMROSE OIL\HERBALS
  2. PRALUENT [Suspect]
     Active Substance: ALIROCUMAB
     Indication: BLOOD CHOLESTEROL
     Dosage: ?          OTHER FREQUENCY:ONCE A FORTNIGHT;?
     Route: 058
     Dates: end: 20190304
  3. DILITIAZEM [Concomitant]
     Active Substance: DILTIAZEM
  4. LOSARTAN. [Concomitant]
     Active Substance: LOSARTAN
  5. ASPIRIN. [Concomitant]
     Active Substance: ASPIRIN
  6. LANSOPRAZOLE. [Concomitant]
     Active Substance: LANSOPRAZOLE

REACTIONS (7)
  - Cough [None]
  - Ulcer [None]
  - Dyspnoea [None]
  - Dysphonia [None]
  - Choking sensation [None]
  - Chest discomfort [None]
  - Dysphagia [None]

NARRATIVE: CASE EVENT DATE: 20190218
